FAERS Safety Report 17862083 (Version 4)
Quarter: 2020Q3

REPORT INFORMATION
  Report Type: Report from Study
  Country: IN (occurrence: IN)
  Receive Date: 20200604
  Receipt Date: 20200827
  Transmission Date: 20201103
  Serious: Yes (Hospitalization, Other)
  Sender: FDA-Public Use
  Company Number: NVSC2020IN155063

PATIENT
  Sex: Male

DRUGS (12)
  1. SCAPHO [Suspect]
     Active Substance: SECUKINUMAB
     Indication: PSORIATIC ARTHROPATHY
     Dosage: 150 MG, Q2W (ONCE IN 2WEEKS)
     Route: 058
     Dates: start: 20200530
  2. SCAPHO [Suspect]
     Active Substance: SECUKINUMAB
     Indication: PSORIASIS
     Dosage: 150 MG, Q2W (ONCE IN 2WEEKS)
     Route: 058
     Dates: start: 20200630
  3. UDILIV [Concomitant]
     Active Substance: URSODIOL
     Indication: PRODUCT USED FOR UNKNOWN INDICATION
     Dosage: 300 MG, BID
     Route: 065
  4. PAN D [Concomitant]
     Indication: PRODUCT USED FOR UNKNOWN INDICATION
     Dosage: UNK UNK, QD
     Route: 065
  5. SCAPHO [Suspect]
     Active Substance: SECUKINUMAB
     Dosage: 300 MG, QW
     Route: 058
     Dates: start: 20200818
  6. ZERODOL P [Concomitant]
     Active Substance: ACECLOFENAC\ACETAMINOPHEN
     Indication: PRODUCT USED FOR UNKNOWN INDICATION
     Dosage: UNK (SOS)
     Route: 065
  7. OMNACORTIL [Concomitant]
     Active Substance: PREDNISOLONE
     Indication: PRODUCT USED FOR UNKNOWN INDICATION
     Dosage: 20 MG, OTHER (1ST WEEK, AFTER BREAKFAST)
     Route: 065
  8. OMNACORTIL [Concomitant]
     Active Substance: PREDNISOLONE
     Dosage: 10 MG, OTHER (3RD WEEK, AFTER BREAKFAST)
     Route: 065
  9. OMNACORTIL [Concomitant]
     Active Substance: PREDNISOLONE
     Dosage: 5 MG, OTHER (4TH WEEK, AFTER BREAKFAST)
     Route: 065
  10. SCAPHO [Suspect]
     Active Substance: SECUKINUMAB
     Dosage: 300 MG, QW
     Route: 058
     Dates: start: 20200810
  11. FOLVITE [Concomitant]
     Active Substance: FOLIC ACID
     Indication: PRODUCT USED FOR UNKNOWN INDICATION
     Dosage: 5 MG, QD (MONDAY TO FRIDAY)
     Route: 065
  12. OMNACORTIL [Concomitant]
     Active Substance: PREDNISOLONE
     Dosage: 15 MG, OTHER (2ND WEEK, AFTER BREAKFAST)
     Route: 065

REACTIONS (12)
  - Psoriatic arthropathy [Unknown]
  - Weight decreased [Unknown]
  - Vomiting [Not Recovered/Not Resolved]
  - Psoriasis [Not Recovered/Not Resolved]
  - Skin lesion [Unknown]
  - Mobility decreased [Unknown]
  - Blood cholesterol abnormal [Not Recovered/Not Resolved]
  - Decreased appetite [Unknown]
  - Diabetes mellitus [Unknown]
  - Pyrexia [Recovered/Resolved]
  - Hypertension [Unknown]
  - Blood pressure abnormal [Not Recovered/Not Resolved]
